FAERS Safety Report 16032551 (Version 2)
Quarter: 2019Q1

REPORT INFORMATION
  Report Type: Report from Study
  Country: None (occurrence: BE)
  Receive Date: 20190304
  Receipt Date: 20190306
  Transmission Date: 20190418
  Serious: Yes (Hospitalization)
  Sender: FDA-Public Use
  Company Number: BE-ABBVIE-19S-013-2683594-00

PATIENT
  Sex: Female

DRUGS (11)
  1. DUODOPA [Suspect]
     Active Substance: CARBIDOPA\LEVODOPA
     Dosage: MD= 8.5ML, CD= 2.8ML/HR DURING 16HRS, ED= 2.5ML
     Route: 050
     Dates: start: 20180406, end: 20190220
  2. ASAFLOW [Concomitant]
     Active Substance: ASPIRIN
     Indication: PRODUCT USED FOR UNKNOWN INDICATION
  3. ALPRAZOLAM. [Concomitant]
     Active Substance: ALPRAZOLAM
     Indication: PRODUCT USED FOR UNKNOWN INDICATION
  4. DUODOPA [Suspect]
     Active Substance: CARBIDOPA\LEVODOPA
     Dosage: DOSES CONTINUOUSLY MONITORED AND ADAPTED
     Route: 050
     Dates: start: 20170901, end: 20180406
  5. ELTHYRONE [Concomitant]
     Active Substance: LEVOTHYROXINE
     Indication: PRODUCT USED FOR UNKNOWN INDICATION
  6. DUODOPA [Suspect]
     Active Substance: CARBIDOPA\LEVODOPA
     Dosage: MD= 9.5ML,CD= 2.9ML/HR DURING 16HRS, ED= 3ML
     Route: 050
     Dates: start: 20190220, end: 20190228
  7. DUODOPA [Suspect]
     Active Substance: CARBIDOPA\LEVODOPA
     Dosage: MD=9.5ML, CD=2.8ML/HR DURING 16HRS, ED=2.5ML
     Route: 050
     Dates: start: 20190228
  8. EMCORETIC [Concomitant]
     Active Substance: BISOPROLOL FUMARATE\HYDROCHLOROTHIAZIDE
     Indication: PRODUCT USED FOR UNKNOWN INDICATION
  9. DUODOPA [Suspect]
     Active Substance: CARBIDOPA\LEVODOPA
     Indication: PARKINSON^S DISEASE
     Dosage: MD= 8ML, CD= 3.2ML/HR DURING 16HRS , ED= 3ML
     Route: 050
     Dates: start: 20170829, end: 20170901
  10. STALEVO 100 [Concomitant]
     Indication: PARKINSON^S DISEASE
     Dosage: FORM STRENGTH: 100MG/25MG/200MG; UNIT DOSE: 1 UNIT
     Route: 048
  11. STALEVO 100 [Concomitant]
     Dosage: FORM STRENGTH: 100MG/25MG/200MG?AS RESCUE MEDICATION EVERY 3 HOURS
     Route: 048

REACTIONS (2)
  - Drug effect incomplete [Recovered/Resolved]
  - Device dislocation [Recovered/Resolved]
